FAERS Safety Report 4827593-4 (Version None)
Quarter: 2005Q4

REPORT INFORMATION
  Report Type: 
  Country: None (occurrence: None)
  Receive Date: 20051114
  Receipt Date: 20051102
  Transmission Date: 20060501
  Serious: Yes (Other)
  Sender: FDA-Public Use
  Company Number: PHBS2005SE16114

PATIENT
  Age: 63 Year
  Sex: Female

DRUGS (1)
  1. ZOMETA [Suspect]
     Indication: MULTIPLE MYELOMA
     Dosage: 4 MG, QMO
     Route: 042
     Dates: start: 20020101

REACTIONS (7)
  - BONE DISORDER [None]
  - OSTEONECROSIS [None]
  - PAIN IN JAW [None]
  - PLASTIC SURGERY [None]
  - PURULENCE [None]
  - TOOTH EXTRACTION [None]
  - WOUND TREATMENT [None]
